FAERS Safety Report 8343747-7 (Version None)
Quarter: 2012Q2

REPORT INFORMATION
  Report Type: 
  Country: None (occurrence: None)
  Receive Date: 20120508
  Receipt Date: 20120508
  Transmission Date: 20120825
  Serious: Yes (Life-Threatening, Hospitalization, Other)
  Sender: FDA-Public Use
  Company Number: None

PATIENT
  Sex: Female
  Weight: 99.79 kg

DRUGS (1)
  1. HUMIRA [Suspect]
     Indication: PSORIASIS
     Dosage: 1 SHOT
     Route: 030
     Dates: start: 20100415, end: 20110415

REACTIONS (12)
  - NO THERAPEUTIC RESPONSE [None]
  - ABDOMINAL DISTENSION [None]
  - DIZZINESS [None]
  - CUSHINGOID [None]
  - NAUSEA [None]
  - ALOPECIA [None]
  - PNEUMONIA [None]
  - DIABETES MELLITUS [None]
  - UPPER RESPIRATORY TRACT INFECTION [None]
  - SINUSITIS [None]
  - DYSPNOEA [None]
  - ORGANISING PNEUMONIA [None]
